FAERS Safety Report 8216102-8 (Version None)
Quarter: 2012Q1

REPORT INFORMATION
  Report Type: 
  Country: None (occurrence: None)
  Receive Date: 20120316
  Receipt Date: 20120314
  Transmission Date: 20120608
  Serious: Yes (Other)
  Sender: FDA-Public Use
  Company Number: US-PFIZER INC-2012061160

PATIENT
  Sex: Female
  Weight: 55.782 kg

DRUGS (1)
  1. LYRICA [Suspect]
     Indication: PAIN IN EXTREMITY
     Dosage: 150 MG, 1X/DAY
     Route: 048
     Dates: start: 20080101

REACTIONS (3)
  - PAIN [None]
  - PAIN IN EXTREMITY [None]
  - HEPATITIS C VIRUS TEST POSITIVE [None]
